FAERS Safety Report 6602755-4 (Version None)
Quarter: 2010Q1

REPORT INFORMATION
  Report Type: 
  Country: None (occurrence: None)
  Receive Date: 20100226
  Receipt Date: 20100212
  Transmission Date: 20100710
  Serious: Yes (Hospitalization)
  Sender: FDA-Public Use
  Company Number: US-RANBAXY-2010RR-31108

PATIENT
  Age: 53 Year
  Sex: Female

DRUGS (3)
  1. ALPRAZOLAM [Suspect]
  2. CITALOPRAM HYDROBROMIDE [Suspect]
  3. VERAPAMIL [Suspect]

REACTIONS (2)
  - INTENTIONAL OVERDOSE [None]
  - TORSADE DE POINTES [None]
